FAERS Safety Report 9986658 (Version 1)
Quarter: 2014Q1

REPORT INFORMATION
  Report Type: Spontaneous
  Country: US (occurrence: US)
  Receive Date: 20140307
  Receipt Date: 20140307
  Transmission Date: 20141002
  Serious: No
  Sender: FDA-Public Use
  Company Number: US-ABBVIE-13P-163-1083688-00

PATIENT
  Sex: 0

DRUGS (1)
  1. HUMIRA [Suspect]
     Indication: PRODUCT USED FOR UNKNOWN INDICATION
     Route: 058
     Dates: start: 20130313

REACTIONS (6)
  - Insomnia [Unknown]
  - Injection site bruising [Unknown]
  - Drug ineffective [Unknown]
  - Psoriasis [Unknown]
  - Psoriasis [Unknown]
  - Psoriasis [Unknown]
